FAERS Safety Report 16042665 (Version 1)
Quarter: 2019Q1

REPORT INFORMATION
  Report Type: Report from Study
  Country: US (occurrence: US)
  Receive Date: 20190306
  Receipt Date: 20190306
  Transmission Date: 20190418
  Serious: Yes (Other)
  Sender: FDA-Public Use
  Company Number: US-JAZZ-2019-US-001184

PATIENT
  Sex: Female

DRUGS (15)
  1. ASPIRIN (E.C.) [Concomitant]
     Active Substance: ASPIRIN
  2. FLUOXETINE HCL [Concomitant]
     Active Substance: FLUOXETINE HYDROCHLORIDE
  3. MELATONIN [Concomitant]
     Active Substance: MELATONIN
  4. XYREM [Suspect]
     Active Substance: SODIUM OXYBATE
     Indication: NARCOLEPSY
     Dosage: 2.25 G, BID
     Route: 048
     Dates: start: 201807, end: 201808
  5. LORATADINE. [Concomitant]
     Active Substance: LORATADINE
  6. LYSINE [Concomitant]
     Active Substance: LYSINE
  7. VITAMIN D3 [Concomitant]
     Active Substance: CHOLECALCIFEROL
  8. XYREM [Suspect]
     Active Substance: SODIUM OXYBATE
     Indication: CATAPLEXY
     Dosage: DOSE ADJUSTMENTS
     Route: 048
     Dates: start: 201808, end: 201812
  9. NUVIGIL [Concomitant]
     Active Substance: ARMODAFINIL
  10. METHIMAZOLE. [Concomitant]
     Active Substance: METHIMAZOLE
  11. FAMOTIDINE. [Concomitant]
     Active Substance: FAMOTIDINE
  12. XYREM [Suspect]
     Active Substance: SODIUM OXYBATE
     Dosage: 4.5 G, BID
     Route: 048
     Dates: start: 201812, end: 201901
  13. VITAMIN C ACID [Concomitant]
     Active Substance: ASCORBIC ACID
  14. CONCERTA [Concomitant]
     Active Substance: METHYLPHENIDATE HYDROCHLORIDE
  15. DOCUSATE SODIUM. [Concomitant]
     Active Substance: DOCUSATE SODIUM

REACTIONS (4)
  - Sensory disturbance [Unknown]
  - Blood pressure increased [Unknown]
  - Heart rate increased [Unknown]
  - Stress [Unknown]
